FAERS Safety Report 8790302 (Version 1)
Quarter: 2012Q4

REPORT INFORMATION
  Report Type: 
  Country: US (occurrence: US)
  Receive Date: 20120917
  Receipt Date: 20120917
  Transmission Date: 20130627
  Serious: No
  Sender: FDA-Public Use
  Company Number: US-TEVA-359170USA

PATIENT
  Age: 27 Year
  Sex: Female
  Weight: 54.48 kg

DRUGS (4)
  1. PLAN B ONE-STEP [Suspect]
     Indication: POST COITAL CONTRACEPTION
     Dosage: 1.5 Milligram Daily;
     Route: 048
     Dates: start: 20120910, end: 20120910
  2. ADDERALL [Concomitant]
     Indication: ATTENTION DEFICIT/HYPERACTIVITY DISORDER
  3. AMBIEN [Concomitant]
     Indication: SLEEP DISORDER
  4. CLONAZEPAM [Concomitant]
     Indication: ANXIETY

REACTIONS (1)
  - Menstruation irregular [Not Recovered/Not Resolved]
